FAERS Safety Report 8485909-4 (Version None)
Quarter: 2012Q3

REPORT INFORMATION
  Report Type: 
  Country: None (occurrence: None)
  Receive Date: 20120703
  Receipt Date: 20120628
  Transmission Date: 20120928
  Serious: Yes (Hospitalization)
  Sender: FDA-Public Use
  Company Number: US-FRI-1000030568

PATIENT
  Sex: Male
  Weight: 83.46 kg

DRUGS (15)
  1. ASPIRIN [Concomitant]
     Dosage: 81 MG
     Route: 048
  2. FEXOFENADINE [Concomitant]
     Dosage: 120 MG
     Route: 048
  3. CLONIDINE [Concomitant]
     Indication: HYPERTENSION
     Dosage: 0.4 MG
     Route: 048
  4. AMLODIPINE [Concomitant]
     Indication: HYPERTENSION
     Dosage: 10 MG
     Route: 048
  5. CRESTOR [Concomitant]
     Dosage: 20 MG
     Route: 048
     Dates: end: 20120101
  6. BROVANA [Concomitant]
     Dosage: 15 MCG/2ML TWICE DAILY AS NEEDED
  7. RANITIDINE [Concomitant]
     Dosage: 300 MG
     Route: 048
  8. XOPENEX [Concomitant]
     Dosage: 1.25 MG
  9. ALBUTEROL [Concomitant]
     Dosage: AS NEEDED
  10. LISINOPRIL [Concomitant]
     Indication: HYPERTENSION
     Dosage: 10 MG
     Route: 048
  11. BUDESONIDE [Concomitant]
     Dosage: 0.5/2MM TWICE DAILY AS NEEDED
  12. DALIRESP [Suspect]
     Indication: CHRONIC OBSTRUCTIVE PULMONARY DISEASE
     Dosage: 500 MCG
     Route: 048
     Dates: start: 20120418, end: 20120502
  13. MEDROL [Suspect]
     Indication: CHRONIC OBSTRUCTIVE PULMONARY DISEASE
     Dates: start: 20120418, end: 20120101
  14. PLAVIX [Concomitant]
     Dosage: 75 MG MONDAY, WEDNESDAY, FRIDAY
     Route: 048
  15. SYMBICORT [Concomitant]
     Dosage: 160/4.5 MG TWICE DAILY

REACTIONS (1)
  - GUILLAIN-BARRE SYNDROME [None]
